FAERS Safety Report 4493085-8 (Version None)
Quarter: 2004Q4

REPORT INFORMATION
  Report Type: 
  Country: None (occurrence: None)
  Receive Date: 20041101
  Receipt Date: 20041019
  Transmission Date: 20050328
  Serious: Yes (Hospitalization)
  Sender: FDA-Public Use
  Company Number: 04H-028-0278730-00

PATIENT
  Age: 67 Year
  Sex: Male

DRUGS (4)
  1. MANNITOL INJECTION (MANNITOL) (MANNITOL) [Suspect]
     Indication: MALIGNANT URINARY TRACT NEOPLASM
     Dosage: 12.5 GRAM, INTRAVENOUS
     Route: 042
     Dates: start: 20040601
  2. GEMCITABINE HYDROCHLORIDE [Suspect]
     Indication: MALIGNANT URINARY TRACT NEOPLASM
     Dosage: 2100 MG, DAILY, INTRAVENOUS
     Route: 042
     Dates: start: 20040601
  3. CISPLATIN [Suspect]
     Indication: MALIGNANT URINARY TRACT NEOPLASM
     Dosage: 147 MG, DAILY, INTRAVENOUS
     Route: 042
     Dates: start: 20040601
  4. FERROUS GLUCONATE [Concomitant]

REACTIONS (2)
  - DEEP VEIN THROMBOSIS [None]
  - HAEMATURIA [None]
